FAERS Safety Report 14997203 (Version 2)
Quarter: 2018Q3

REPORT INFORMATION
  Report Type: Report from Study
  Country: DE (occurrence: DE)
  Receive Date: 20180611
  Receipt Date: 20180718
  Transmission Date: 20181010
  Serious: Yes (Other)
  Sender: FDA-Public Use
  Company Number: DE-TEVA-2018-DE-904904

PATIENT
  Age: 59 Year
  Sex: Male
  Weight: 70 kg

DRUGS (22)
  1. PANITUMUMAB SOLUTION FOR INJECTION [Suspect]
     Active Substance: PANITUMUMAB
     Indication: COLORECTAL CANCER METASTATIC
     Dosage: 424 MG, UNK
     Route: 042
     Dates: start: 20180314
  2. MOXONIDIN?RATIOPHARM [Concomitant]
     Indication: HYPERTENSION
     Dosage: .3 MILLIGRAM DAILY; 0.3 MG, BID
     Route: 048
     Dates: start: 201802
  3. DOXYCYCLIN?RATIOPHARM [Concomitant]
     Indication: RASH
     Dosage: 200 MILLIGRAM DAILY; 200 MG, BID
     Route: 048
     Dates: start: 20180312
  4. BELOC?ZOK COMP [Concomitant]
     Active Substance: HYDROCHLOROTHIAZIDE\METOPROLOL SUCCINATE
     Indication: HYPERTENSION
     Dosage: 47.5 MILLIGRAM DAILY; 47.5 MG, BID
     Route: 048
     Dates: start: 201802
  5. CARMEN [Concomitant]
     Active Substance: LERCANIDIPINE
     Indication: HYPERTENSION
     Dosage: 10 GBQ DAILY; 10 MG, QD
     Route: 048
     Dates: start: 201802
  6. IRINOTECAN [Suspect]
     Active Substance: IRINOTECAN
     Indication: COLORECTAL CANCER METASTATIC
     Dosage: 329 MG, UNK
     Route: 065
     Dates: start: 20180314
  7. FLUOROURACIL. [Suspect]
     Active Substance: FLUOROURACIL
     Dosage: 730MG, UNK
     Route: 040
     Dates: start: 20180314
  8. SPIRONOLACTON?RATIOPHARM [Concomitant]
     Indication: PROPHYLAXIS
     Dosage: 50 MILLIGRAM DAILY; 50 MG, QD
     Route: 048
     Dates: start: 201802
  9. PANTOPRAZOL RATIOPHARM [Concomitant]
     Active Substance: PANTOPRAZOLE SODIUM
     Indication: PROPHYLAXIS
     Dosage: 40 MILLIGRAM DAILY; 40 MG, QD
     Route: 048
     Dates: start: 201802
  10. CLEXANE DUO [Concomitant]
     Dosage: 40 MILLIGRAM DAILY; 40 MG, QD
     Route: 058
     Dates: start: 201801, end: 20180313
  11. NOVAMINSULFON?RATIOPHARM [Concomitant]
     Active Substance: METAMIZOLE
     Indication: GOUT
     Dosage: 500 MILLIGRAM DAILY; 500 MG, QID
     Route: 048
     Dates: start: 201802
  12. FLUOROURACIL. [Suspect]
     Active Substance: FLUOROURACIL
     Indication: COLORECTAL CANCER METASTATIC
     Dosage: 130 MG, UNK
     Route: 040
     Dates: start: 20180404
  13. BAYOTENSIN [Concomitant]
     Active Substance: NITRENDIPINE
     Indication: HYPERTENSION
     Dosage: 5 MG, AS NECESSARY
     Route: 048
     Dates: start: 201802
  14. MOVICOL [Concomitant]
     Active Substance: POLYETHYLENE GLYCOL 3350\POTASSIUM CHLORIDE\SODIUM BICARBONATE\SODIUM CHLORIDE
     Indication: RECTAL CANCER
     Dosage: 1 UNK, AS NECESSARY
     Route: 048
     Dates: start: 201802
  15. TOREM [Concomitant]
     Active Substance: TORSEMIDE
     Indication: HYPERTENSION
     Dosage: 10 MILLIGRAM DAILY; 10 MG, QD
     Route: 048
     Dates: start: 201802
  16. PANITUMUMAB SOLUTION FOR INJECTION [Suspect]
     Active Substance: PANITUMUMAB
     Dosage: 424MG, UNK
     Route: 042
     Dates: start: 20180404
  17. VITAMIN B1 AND B6 [Concomitant]
     Active Substance: PYRIDOXINE HYDROCHLORIDE\THIAMINE HYDROCHLORIDE
     Indication: PROPHYLAXIS
     Dosage: 999 UNK, QD
     Route: 048
     Dates: start: 201802
  18. FLUOROURACIL. [Suspect]
     Active Substance: FLUOROURACIL
     Dosage: 1100MG, UNK
     Route: 042
     Dates: start: 20180314
  19. CARMEN [Concomitant]
     Active Substance: LERCANIDIPINE
     Indication: HYPERTENSION
     Dosage: 10 MILLIGRAM DAILY; 10 MG, QD
     Route: 048
     Dates: start: 201802
  20. FOLINIC ACID [Suspect]
     Active Substance: LEUCOVORIN
     Indication: COLORECTAL CANCER METASTATIC
     Dosage: 366 MG, UNK
     Route: 065
     Dates: start: 20180314
  21. L?THYROXIN BETA [Concomitant]
     Indication: HYPOTHYROIDISM
     Dosage: 75 UG/KG DAILY; 75 MUG/KG, QD
     Route: 048
     Dates: start: 201802
  22. ENALAPRIL?RATIOPHARM [Concomitant]
     Active Substance: ENALAPRIL
     Indication: HYPERTENSION
     Dosage: 20 MILLIGRAM DAILY; 20 MG, QD
     Route: 048
     Dates: start: 201802

REACTIONS (2)
  - Leukopenia [Recovered/Resolved]
  - Drug eruption [Recovering/Resolving]

NARRATIVE: CASE EVENT DATE: 20180327
